FAERS Safety Report 24001709 (Version 1)
Quarter: 2024Q2

REPORT INFORMATION
  Report Type: Spontaneous
  Country: US (occurrence: US)
  Receive Date: 20240621
  Receipt Date: 20240621
  Transmission Date: 20240716
  Serious: Yes (Other)
  Sender: FDA-Public Use
  Company Number: US-PRINSTON PHARMACEUTICAL INC.-2024PRN00242

PATIENT
  Age: 49 Year
  Sex: Female

DRUGS (1)
  1. PHENTERMINE HYDROCHLORIDE [Suspect]
     Active Substance: PHENTERMINE HYDROCHLORIDE
     Indication: Weight decreased
     Dosage: 37.5 MG, 1X/DAY

REACTIONS (2)
  - Retinal artery occlusion [Not Recovered/Not Resolved]
  - Blindness [Not Recovered/Not Resolved]
